FAERS Safety Report 23400452 (Version 1)
Quarter: 2024Q1

REPORT INFORMATION
  Report Type: Spontaneous
  Country: US (occurrence: US)
  Receive Date: 20240115
  Receipt Date: 20240115
  Transmission Date: 20240410
  Serious: No
  Sender: FDA-Public Use
  Company Number: US-BRISTOL-MYERS SQUIBB COMPANY-2024-006960

PATIENT
  Age: 42 Year
  Sex: Male

DRUGS (1)
  1. ZEPOSIA [Suspect]
     Active Substance: OZANIMOD HYDROCHLORIDE
     Indication: Multiple sclerosis
     Route: 048

REACTIONS (8)
  - Headache [Unknown]
  - Depression [Unknown]
  - Fatigue [Unknown]
  - Muscle spasms [Unknown]
  - Hypoaesthesia [Unknown]
  - Pain [Unknown]
  - Anger [Unknown]
  - Gastroenteritis viral [Unknown]
